FAERS Safety Report 7625812-2 (Version None)
Quarter: 2011Q3

REPORT INFORMATION
  Report Type: 
  Country: None (occurrence: None)
  Receive Date: 20110721
  Receipt Date: 20110711
  Transmission Date: 20111222
  Serious: Yes (Hospitalization)
  Sender: FDA-Public Use
  Company Number: IT-ELI_LILLY_AND_COMPANY-IT201107002914

PATIENT
  Sex: Male

DRUGS (4)
  1. CARBOPLATIN [Concomitant]
     Indication: PLEURAL NEOPLASM
     Dosage: 400 MG/CYCLE
     Route: 042
     Dates: start: 20110404, end: 20110628
  2. FOLIC ACID [Concomitant]
  3. ALIMTA [Suspect]
     Indication: PLEURAL NEOPLASM
     Dosage: 750 MG/CYCLE
     Route: 042
     Dates: start: 20090730, end: 20110628
  4. DOBETIN [Concomitant]
     Dosage: 1000 MCG/ML
     Route: 042

REACTIONS (5)
  - FEELING HOT [None]
  - DYSPNOEA [None]
  - NAUSEA [None]
  - MALAISE [None]
  - FLUSHING [None]
